FAERS Safety Report 20659807 (Version 4)
Quarter: 2024Q3

REPORT INFORMATION
  Report Type: Report from Study
  Country: CA (occurrence: CA)
  Receive Date: 20220331
  Receipt Date: 20240705
  Transmission Date: 20241016
  Serious: No
  Sender: ROCHE
  Company Number: CA-ROCHE-3063925

PATIENT
  Age: 43 Year
  Sex: Female

DRUGS (4)
  1. OCREVUS [Suspect]
     Active Substance: OCRELIZUMAB
     Indication: Relapsing-remitting multiple sclerosis
     Dosage: 300 MG AT DAY 0 AND 14, THEN 600 MG EVERY 6 MONTH
     Route: 042
     Dates: start: 20211123
  2. AMOXICILLIN [Concomitant]
     Active Substance: AMOXICILLIN
  3. PREDNISONE [Concomitant]
     Active Substance: PREDNISONE
  4. VENTOLIN [Concomitant]
     Active Substance: ALBUTEROL SULFATE

REACTIONS (7)
  - Sinusitis [Not Recovered/Not Resolved]
  - SARS-CoV-2 test positive [Unknown]
  - Cough [Not Recovered/Not Resolved]
  - Bronchitis [Not Recovered/Not Resolved]
  - Nasal discharge discolouration [Unknown]
  - Nasal congestion [Not Recovered/Not Resolved]
  - Ear pruritus [Not Recovered/Not Resolved]

NARRATIVE: CASE EVENT DATE: 20220323
